FAERS Safety Report 15123563 (Version 2)
Quarter: 2018Q3

REPORT INFORMATION
  Report Type: Spontaneous
  Country: FR (occurrence: FR)
  Receive Date: 20180710
  Receipt Date: 20180918
  Transmission Date: 20181010
  Serious: Yes (Life-Threatening, Hospitalization, Other)
  Sender: FDA-Public Use
  Company Number: FR-BRISTOL-MYERS SQUIBB COMPANY-BMS-2018-057551

PATIENT
  Age: 19 Year
  Sex: Female
  Weight: 81 kg

DRUGS (2)
  1. TARDYFERON B9                      /00023601/ [Concomitant]
     Active Substance: FERROUS SULFATE\FOLIC ACID
     Indication: PRODUCT USED FOR UNKNOWN INDICATION
     Route: 065
  2. METFORMIN HYDROCHLORIDE. [Suspect]
     Active Substance: METFORMIN HYDROCHLORIDE
     Indication: POISONING DELIBERATE
     Dosage: 70 TAB, UNK
     Route: 048
     Dates: start: 20180515, end: 20180515

REACTIONS (3)
  - Lactic acidosis [Recovered/Resolved]
  - Poisoning deliberate [Unknown]
  - Hyperlactacidaemia [Recovered/Resolved]

NARRATIVE: CASE EVENT DATE: 20180515
